FAERS Safety Report 5771931-5 (Version None)
Quarter: 2008Q2

REPORT INFORMATION
  Report Type: 
  Country: None (occurrence: None)
  Receive Date: 20080613
  Receipt Date: 20080605
  Transmission Date: 20081010
  Serious: Yes (Hospitalization)
  Sender: FDA-Public Use
  Company Number: NL-ASTRAZENECA-2008AC01454

PATIENT
  Age: 17827 Day
  Sex: Female

DRUGS (6)
  1. XYLOCAINE [Suspect]
     Indication: TOE OPERATION
     Dates: start: 20080407, end: 20080407
  2. ADALAT [Concomitant]
  3. LEXAPRO [Concomitant]
  4. ASASANTIN RETARD [Concomitant]
     Dosage: 20/200 MG BID
  5. ACTOKIT [Concomitant]
     Dosage: 1 TABL ACTONEL 35 MG + 6 TABL CALCIUM 500 MG WEEK
  6. CRESTOR [Concomitant]
     Route: 048

REACTIONS (1)
  - IDIOPATHIC THROMBOCYTOPENIC PURPURA [None]
